FAERS Safety Report 17085812 (Version 1)
Quarter: 2019Q4

REPORT INFORMATION
  Report Type: Spontaneous
  Country: US (occurrence: US)
  Receive Date: 20191127
  Receipt Date: 20191127
  Transmission Date: 20200122
  Serious: Yes (Other)
  Sender: FDA-Public Use
  Company Number: None

PATIENT
  Age: 62 Year
  Sex: Female
  Weight: 56.7 kg

DRUGS (2)
  1. REFRESH EYE DROPS FOR DRY EYS INDIVIDUALLY PACKAGED [Concomitant]
  2. TOBRAMYCIN AND DEXAMETHASONE [Suspect]
     Active Substance: DEXAMETHASONE\TOBRAMYCIN
     Indication: EYELID DISORDER
     Dosage: ?          QUANTITY:1 DROP(S);?
     Route: 047
     Dates: start: 20191003, end: 20191006

REACTIONS (6)
  - Skin discolouration [None]
  - Drug hypersensitivity [None]
  - Eye swelling [None]
  - Vision blurred [None]
  - Metamorphopsia [None]
  - Visual impairment [None]

NARRATIVE: CASE EVENT DATE: 20191004
